FAERS Safety Report 8473783-1 (Version None)
Quarter: 2012Q2

REPORT INFORMATION
  Report Type: 
  Country: None (occurrence: None)
  Receive Date: 20120628
  Receipt Date: 20111109
  Transmission Date: 20120825
  Serious: Yes (Death)
  Sender: FDA-Public Use
  Company Number: US-MYLANLABS-2011S1023241

PATIENT
  Age: 71 Year
  Sex: Male

DRUGS (10)
  1. EXELON [Concomitant]
  2. NIASPAN [Concomitant]
  3. LASIX [Concomitant]
  4. CLOZAPINE [Suspect]
     Indication: SCHIZOPHRENIA
     Route: 048
  5. POTASSIUM ACETATE [Concomitant]
  6. CARBIDOPA [Concomitant]
  7. SIMVASTATIN [Concomitant]
  8. DEPAKOTE [Concomitant]
  9. ANTIBIOTICS [Concomitant]
  10. LEVOTHYROXINE [Concomitant]

REACTIONS (1)
  - DEATH [None]
